FAERS Safety Report 18494153 (Version 1)
Quarter: 2020Q4

REPORT INFORMATION
  Report Type: Report from Study
  Country: US (occurrence: US)
  Receive Date: 20201112
  Receipt Date: 20201112
  Transmission Date: 20210114
  Serious: No
  Sender: FDA-Public Use
  Company Number: NVSC2020US297824

PATIENT
  Age: 7 Year
  Sex: Female

DRUGS (2)
  1. ILARIS [Suspect]
     Active Substance: CANAKINUMAB
     Dosage: 120 MG
     Route: 058
     Dates: start: 20200909
  2. ILARIS [Suspect]
     Active Substance: CANAKINUMAB
     Indication: JUVENILE IDIOPATHIC ARTHRITIS
     Dosage: 75 MG
     Route: 058
     Dates: start: 20191212

REACTIONS (2)
  - Pyrexia [Unknown]
  - Weight increased [Unknown]

NARRATIVE: CASE EVENT DATE: 20200814
